FAERS Safety Report 8910197 (Version 2)
Quarter: 2012Q4

REPORT INFORMATION
  Report Type: 
  Country: US (occurrence: US)
  Receive Date: 20121114
  Receipt Date: 20121227
  Transmission Date: 20130627
  Serious: Yes (Hospitalization)
  Sender: FDA-Public Use
  Company Number: US-GILEAD-2012-0064464

PATIENT
  Age: 76 Year
  Sex: Male

DRUGS (2)
  1. LETAIRIS [Suspect]
     Indication: COR PULMONALE CHRONIC
     Dosage: 5 mg, QD
     Route: 048
     Dates: start: 20080220, end: 20121011
  2. LETAIRIS [Suspect]
     Dosage: 5 mg, QD
     Route: 048
     Dates: start: 20121107

REACTIONS (1)
  - Pneumonia [Unknown]
